FAERS Safety Report 21932465 (Version 1)
Quarter: 2023Q1

REPORT INFORMATION
  Report Type: Spontaneous
  Country: JP (occurrence: JP)
  Receive Date: 20230131
  Receipt Date: 20230131
  Transmission Date: 20230418
  Serious: Yes (Death, Hospitalization, Other)
  Sender: FDA-Public Use
  Company Number: JP-DSJP-DSJ-2023-103040

PATIENT
  Age: 81 Year
  Sex: Male
  Weight: 53 kg

DRUGS (10)
  1. OLMESARTAN MEDOXOMIL [Suspect]
     Active Substance: OLMESARTAN MEDOXOMIL
     Indication: Hypertension
     Dosage: 20MG/DAY
     Route: 048
     Dates: start: 2015
  2. CISPLATIN [Suspect]
     Active Substance: CISPLATIN
     Indication: Squamous cell carcinoma
     Dosage: 51.9MG/DAY
     Route: 013
     Dates: start: 202003, end: 202003
  3. CISPLATIN [Suspect]
     Active Substance: CISPLATIN
     Dosage: 90MG/DAY
     Route: 013
     Dates: start: 2020, end: 2020
  4. CISPLATIN [Suspect]
     Active Substance: CISPLATIN
     Dosage: 119.9MG/DAY
     Route: 013
     Dates: start: 2020, end: 2020
  5. CISPLATIN [Suspect]
     Active Substance: CISPLATIN
     Dosage: 117.0MG/DAY
     Route: 013
     Dates: start: 202006, end: 202006
  6. AMLODIPINE BESYLATE [Concomitant]
     Active Substance: AMLODIPINE BESYLATE
     Indication: Hypertension
     Dosage: 5MG/DAY
     Route: 048
     Dates: start: 2015
  7. TRICHLORMETHIAZIDE [Concomitant]
     Active Substance: TRICHLORMETHIAZIDE
     Indication: Hypertension
     Dosage: 2MG/DAY
     Route: 048
     Dates: start: 2015
  8. GLIMEPIRIDE [Concomitant]
     Active Substance: GLIMEPIRIDE
     Indication: Type 2 diabetes mellitus
     Dosage: 2MG/DAY
     Route: 048
     Dates: start: 2015
  9. SODIUM THIOSULFATE;SULFUR [Concomitant]
     Dosage: UNK
     Route: 042
  10. TS-1 [Concomitant]
     Active Substance: GIMERACIL\OTERACIL\TEGAFUR
     Dosage: 80 MG
     Route: 048

REACTIONS (7)
  - Pneumonia [Fatal]
  - Oesophageal carcinoma [Recovered/Resolved]
  - Squamous cell carcinoma [Unknown]
  - Atheroembolism [Unknown]
  - Anaemia [Unknown]
  - Dermatitis [Unknown]
  - Stomatitis [Unknown]
